FAERS Safety Report 7525175-7 (Version None)
Quarter: 2011Q2

REPORT INFORMATION
  Report Type: 
  Country: None (occurrence: None)
  Receive Date: 20110606
  Receipt Date: 20110531
  Transmission Date: 20111010
  Serious: Yes (Hospitalization)
  Sender: FDA-Public Use
  Company Number: CA-SANOFI-AVENTIS-2011SA034267

PATIENT
  Age: 76 Year
  Sex: Female
  Weight: 73 kg

DRUGS (5)
  1. INDAPAMIDE [Suspect]
     Route: 048
  2. PERINDOPRIL ERBUMINE [Suspect]
  3. GLUCOPHAGE [Suspect]
  4. VALSARTAN [Suspect]
  5. ATORVASTATIN CALCIUM [Suspect]
     Route: 048

REACTIONS (3)
  - TACHYCARDIA [None]
  - COUGH [None]
  - THROAT IRRITATION [None]
